FAERS Safety Report 25991163 (Version 4)
Quarter: 2025Q4

REPORT INFORMATION
  Report Type: Report from Study
  Country: US (occurrence: US)
  Receive Date: 20251103
  Receipt Date: 20251230
  Transmission Date: 20260117
  Serious: Yes (Life-Threatening, Hospitalization, Disabling, Other)
  Sender: MYLAN
  Company Number: US-MYLANLABS-2025M1090161

PATIENT
  Sex: Female
  Weight: 65.76 kg

DRUGS (2)
  1. DILANTIN [Suspect]
     Active Substance: PHENYTOIN
     Indication: Generalised tonic-clonic seizure
     Dosage: 100 MILLIGRAM
  2. DILANTIN [Suspect]
     Active Substance: PHENYTOIN
     Indication: Seizure prophylaxis
     Dosage: 100 MILLIGRAM, BID (2X/DAY)
     Route: 061
     Dates: start: 1982

REACTIONS (13)
  - Constipation [Recovering/Resolving]
  - Volvulus [Unknown]
  - Cerebellar atrophy [Unknown]
  - Adverse event [Unknown]
  - Drug intolerance [Unknown]
  - Breast mass [Unknown]
  - Drug level decreased [Unknown]
  - Memory impairment [Unknown]
  - Feeling jittery [Recovering/Resolving]
  - Blood pressure increased [Unknown]
  - Dizziness [Unknown]
  - Loss of personal independence in daily activities [Unknown]
  - Multi-organ disorder [Unknown]

NARRATIVE: CASE EVENT DATE: 19890101
